FAERS Safety Report 7959566-7 (Version None)
Quarter: 2011Q4

REPORT INFORMATION
  Report Type: 
  Country: None (occurrence: None)
  Receive Date: 20111201
  Receipt Date: 20111118
  Transmission Date: 20120403
  Serious: Yes (Other)
  Sender: FDA-Public Use
  Company Number: 11-259C

PATIENT
  Age: 74 Year
  Sex: Female
  Weight: 77.1115 kg

DRUGS (4)
  1. ZYRTEC [Suspect]
     Indication: SEASONAL ALLERGY
     Dosage: 10MG PO DAILY, 10MG BID PO DAILY, 10MG TID PO DAILY
     Route: 048
     Dates: start: 20110101, end: 20111001
  2. ZYRTEC [Suspect]
     Indication: SEASONAL ALLERGY
     Dosage: 10MG PO DAILY, 10MG BID PO DAILY, 10MG TID PO DAILY
     Route: 048
     Dates: start: 20111001, end: 20111107
  3. ZYRTEC [Suspect]
     Indication: SEASONAL ALLERGY
     Dosage: 10MG PO DAILY, 10MG BID PO DAILY, 10MG TID PO DAILY
     Route: 048
     Dates: start: 20110701
  4. NATURAL SUPPLEMENTS [Concomitant]

REACTIONS (2)
  - DIARRHOEA HAEMORRHAGIC [None]
  - GASTROINTESTINAL HAEMORRHAGE [None]
